FAERS Safety Report 8494983-0 (Version None)
Quarter: 2012Q3

REPORT INFORMATION
  Report Type: 
  Country: None (occurrence: None)
  Receive Date: 20120709
  Receipt Date: 20120629
  Transmission Date: 20120928
  Serious: Yes (Hospitalization)
  Sender: FDA-Public Use
  Company Number: FR-VERTEX PHARMACEUTICALS INC.-000000000000000430

PATIENT
  Sex: Male
  Weight: 57 kg

DRUGS (7)
  1. PEGASYS [Concomitant]
     Indication: HEPATITIS C
     Route: 058
     Dates: start: 20110825
  2. COPEGUS [Concomitant]
     Route: 048
     Dates: start: 20111101, end: 20111122
  3. COPEGUS [Concomitant]
     Indication: HEPATITIS C
     Route: 048
     Dates: start: 20110825, end: 20111018
  4. COPEGUS [Concomitant]
     Route: 048
     Dates: start: 20111019, end: 20111031
  5. TELAPREVIR [Suspect]
     Indication: HEPATITIS C
     Dosage: DOSAGE FORM: TABLET
     Route: 048
     Dates: start: 20110825, end: 20111027
  6. COPEGUS [Concomitant]
     Route: 048
     Dates: start: 20111123
  7. NEORECORMON [Concomitant]
     Indication: ANAEMIA
     Dates: start: 20111007

REACTIONS (2)
  - ANAEMIA [None]
  - HAEMOLYTIC ANAEMIA [None]
